FAERS Safety Report 4530912-X (Version None)
Quarter: 2004Q4

REPORT INFORMATION
  Report Type: 
  Country: None (occurrence: None)
  Receive Date: 20041215
  Receipt Date: 20041202
  Transmission Date: 20050328
  Serious: Yes (Other)
  Sender: FDA-Public Use
  Company Number: 2004107978

PATIENT
  Sex: Female

DRUGS (1)
  1. LINEZOLID SOLUTION, STERILE (LINEZOLID) [Suspect]
     Indication: NOCARDIOSIS
     Dosage: ORAL
     Route: 048

REACTIONS (3)
  - ASTHENIA [None]
  - DEPRESSION [None]
  - NEUROPATHY PERIPHERAL [None]
